FAERS Safety Report 9202254 (Version 1)
Quarter: 2013Q2

REPORT INFORMATION
  Report Type: Spontaneous
  Country: JP (occurrence: JP)
  Receive Date: 20130401
  Receipt Date: 20130401
  Transmission Date: 20140414
  Serious: Yes (Other)
  Sender: FDA-Public Use
  Company Number: JP-ASTRAZENECA-2013SE19550

PATIENT
  Age: 82 Year
  Sex: Female
  Weight: 33 kg

DRUGS (6)
  1. MARCAIN SPINAL [Suspect]
     Indication: SPINAL ANAESTHESIA
     Route: 029
  2. DIPRIVAN [Suspect]
     Indication: SEDATIVE THERAPY
     Dosage: 1.5 MG/KG/HR
     Route: 042
  3. XYLOCAINE [Suspect]
     Indication: NEUROMUSCULAR BLOCKADE
     Route: 053
  4. ANAPEINE [Suspect]
     Indication: NEUROMUSCULAR BLOCKADE
     Route: 053
  5. FENTANYL [Concomitant]
     Indication: SEDATION
     Route: 042
  6. MIDAZOLAM [Concomitant]
     Indication: SEDATION
     Dosage: DOSE UNKNOWN
     Route: 042

REACTIONS (1)
  - Hypercapnia [Recovering/Resolving]
